FAERS Safety Report 5801152-9 (Version None)
Quarter: 2008Q3

REPORT INFORMATION
  Report Type: 
  Country: None (occurrence: None)
  Receive Date: 20080707
  Receipt Date: 20080630
  Transmission Date: 20090109
  Serious: Yes (Hospitalization, Other)
  Sender: FDA-Public Use
  Company Number: PHEH2008US04582

PATIENT
  Sex: Male
  Weight: 74.376 kg

DRUGS (6)
  1. FOCALIN XR [Suspect]
     Indication: ASPERGER'S DISORDER
     Dosage: 10 MG, QD
     Dates: start: 20071107, end: 20080110
  2. FOCALIN XR [Suspect]
     Indication: ATTENTION DEFICIT/HYPERACTIVITY DISORDER
     Dosage: 10 MG, QAM
     Route: 048
     Dates: start: 20080102, end: 20080422
  3. GEODON [Suspect]
     Indication: BIPOLAR DISORDER
     Dosage: 20 MG, BID
     Dates: start: 20080102
  4. GEODON [Suspect]
     Dosage: 80 MG, QD
     Dates: start: 20080101
  5. NEURONTIN [Concomitant]
     Dosage: 300 MG, BID
     Route: 048
     Dates: start: 20070912, end: 20080507
  6. ZOLOFT [Concomitant]
     Dosage: 150 MG, QD
     Route: 048
     Dates: start: 20070830

REACTIONS (5)
  - ANOREXIA [None]
  - BIPOLAR DISORDER [None]
  - MANIA [None]
  - NAUSEA [None]
  - WEIGHT DECREASED [None]
